FAERS Safety Report 24844760 (Version 1)
Quarter: 2025Q1

REPORT INFORMATION
  Report Type: Report from Study
  Country: CA (occurrence: CA)
  Receive Date: 20250115
  Receipt Date: 20250115
  Transmission Date: 20250409
  Serious: Yes (Hospitalization, Other)
  Sender: PFIZER
  Company Number: CA-PFIZER INC-202300285462

PATIENT
  Age: 79 Year
  Sex: Female

DRUGS (36)
  1. RITUXIMAB [Suspect]
     Active Substance: RITUXIMAB
     Indication: Rheumatoid arthritis
     Route: 041
  2. RITUXIMAB [Suspect]
     Active Substance: RITUXIMAB
     Route: 041
  3. RITUXIMAB [Suspect]
     Active Substance: RITUXIMAB
     Indication: Rheumatoid arthritis
     Route: 041
  4. ASPIRIN [Concomitant]
     Active Substance: ASPIRIN
     Route: 065
  5. ALLOPURINOL [Concomitant]
     Active Substance: ALLOPURINOL
  6. ALLOPURINOL [Concomitant]
     Active Substance: ALLOPURINOL
  7. FLUTICASONE FUROATE [Concomitant]
     Active Substance: FLUTICASONE FUROATE
  8. FLUTICASONE FUROATE [Concomitant]
     Active Substance: FLUTICASONE FUROATE
  9. BENADRYL [Concomitant]
     Active Substance: DIPHENHYDRAMINE HYDROCHLORIDE
     Indication: Premedication
     Route: 048
  10. BILASTINE [Concomitant]
     Active Substance: BILASTINE
     Route: 048
  11. CANDESARTAN [Concomitant]
     Active Substance: CANDESARTAN
     Route: 065
  12. DEXILANT [Concomitant]
     Active Substance: DEXLANSOPRAZOLE
  13. DEXILANT [Concomitant]
     Active Substance: DEXLANSOPRAZOLE
  14. DRONABINOL [Concomitant]
     Active Substance: DRONABINOL
     Route: 065
  15. EZETIMIBE [Concomitant]
     Active Substance: EZETIMIBE
     Indication: Blood cholesterol increased
     Route: 065
  16. GABAPENTIN [Concomitant]
     Active Substance: GABAPENTIN
     Indication: Pain
  17. HYDROXYCHLOROQUINE SULFATE [Concomitant]
     Active Substance: HYDROXYCHLOROQUINE SULFATE
  18. KRILL OIL [Concomitant]
     Active Substance: DIETARY SUPPLEMENT\KRILL OIL
  19. OMALIZUMAB [Concomitant]
     Active Substance: OMALIZUMAB
     Route: 065
  20. FISH OIL [Concomitant]
     Active Substance: FISH OIL
  21. SOLU-MEDROL [Concomitant]
     Active Substance: METHYLPREDNISOLONE SODIUM SUCCINATE
     Indication: Premedication
     Route: 042
  22. SYNTHROID [Concomitant]
     Active Substance: LEVOTHYROXINE SODIUM
     Route: 065
  23. TIAZAC [Concomitant]
     Active Substance: DILTIAZEM HYDROCHLORIDE
     Route: 065
  24. TYLENOL [Concomitant]
     Active Substance: ACETAMINOPHEN
     Indication: Premedication
     Route: 048
  25. METHYLPREDNISOLONE SODIUM SUCCINATE [Concomitant]
     Active Substance: METHYLPREDNISOLONE SODIUM SUCCINATE
     Indication: Premedication
     Route: 042
  26. DILTIAZEM [Concomitant]
     Active Substance: DILTIAZEM
  27. FOLIC ACID [Concomitant]
     Active Substance: FOLIC ACID
  28. INDAPAMIDE [Concomitant]
     Active Substance: INDAPAMIDE
  29. LEVOTHYROXINE SODIUM [Concomitant]
     Active Substance: LEVOTHYROXINE SODIUM
  30. POLYETHYLENE GLYCOL 400\PROPYLENE GLYCOL [Concomitant]
     Active Substance: POLYETHYLENE GLYCOL 400\PROPYLENE GLYCOL
     Indication: Dry eye
     Dosage: UNK, 1X/DAY
  31. NITROGLYCERIN [Concomitant]
     Active Substance: NITROGLYCERIN
  32. NORTRIPTYLINE [Concomitant]
     Active Substance: NORTRIPTYLINE
  33. PREGABALIN [Concomitant]
     Active Substance: PREGABALIN
  34. ROSUVASTATIN [Concomitant]
     Active Substance: ROSUVASTATIN
  35. RUPATADINE [Concomitant]
     Active Substance: RUPATADINE
  36. SULFASALAZINE [Concomitant]
     Active Substance: SULFASALAZINE

REACTIONS (20)
  - Arthralgia [Unknown]
  - Blood pressure decreased [Unknown]
  - Hypoaesthesia [Unknown]
  - Muscle spasms [Unknown]
  - Musculoskeletal stiffness [Unknown]
  - Pain in extremity [Unknown]
  - Stress [Unknown]
  - Swelling [Unknown]
  - Thyroid function test abnormal [Unknown]
  - Weight decreased [Unknown]
  - Angioedema [Unknown]
  - Cauda equina syndrome [Unknown]
  - Cough [Unknown]
  - Dry eye [Unknown]
  - Erythema [Unknown]
  - Localised infection [Unknown]
  - Oropharyngeal pain [Unknown]
  - Peripheral swelling [Unknown]
  - Rhinorrhoea [Unknown]
  - Weight increased [Unknown]
